FAERS Safety Report 7525158-7 (Version None)
Quarter: 2011Q2

REPORT INFORMATION
  Report Type: 
  Country: None (occurrence: None)
  Receive Date: 20110526
  Receipt Date: 20110509
  Transmission Date: 20111010
  Serious: Yes (Hospitalization, Other)
  Sender: FDA-Public Use
  Company Number: 2009S1006329

PATIENT
  Age: 66 Year
  Sex: Female
  Weight: 123.3784 kg

DRUGS (9)
  1. ATENOLOL [Concomitant]
  2. CETAPHIL [Concomitant]
  3. GLUCOTROL XL [Concomitant]
  4. DURAMORPH PF [Suspect]
     Indication: POSTOPERATIVE ANALGESIA
     Dosage: ED
     Dates: start: 20050801
  5. TYLENOL-500 [Concomitant]
  6. PHOSPHOSODA FLAVOR NOT SPECIFIED [Suspect]
     Indication: COLONOSCOPY
     Dates: start: 20050801, end: 20050801
  7. METFORMIN HCL [Concomitant]
  8. HYZAAR [Concomitant]
  9. ASPIRIN [Concomitant]

REACTIONS (4)
  - RENAL FAILURE ACUTE [None]
  - RENAL TUBULAR DISORDER [None]
  - RENAL FAILURE CHRONIC [None]
  - HYPOTENSION [None]
